FAERS Safety Report 7870134-8 (Version None)
Quarter: 2011Q4

REPORT INFORMATION
  Report Type: 
  Country: None (occurrence: None)
  Receive Date: 20111028
  Receipt Date: 20110113
  Transmission Date: 20120403
  Serious: No
  Sender: FDA-Public Use
  Company Number: US-AMGEN-USASP2011002315

PATIENT
  Sex: Female

DRUGS (2)
  1. METHOTREXATE [Concomitant]
     Dosage: 1 MG, QWK
     Dates: start: 20050101
  2. ENBREL [Suspect]
     Indication: SYSTEMIC LUPUS ERYTHEMATOSUS
     Dosage: UNK
     Dates: start: 20090715, end: 20101110

REACTIONS (6)
  - INJECTION SITE SWELLING [None]
  - THERAPEUTIC RESPONSE DECREASED [None]
  - INJECTION SITE PRURITUS [None]
  - DRUG INEFFECTIVE [None]
  - ARTHRALGIA [None]
  - INJECTION SITE ERYTHEMA [None]
